FAERS Safety Report 5158334-1 (Version None)
Quarter: 2006Q4

REPORT INFORMATION
  Report Type: 
  Country: None (occurrence: None)
  Receive Date: 20061128
  Receipt Date: 20061116
  Transmission Date: 20070319
  Serious: Yes (Other)
  Sender: FDA-Public Use
  Company Number: JP-JNJFOC-20061105033

PATIENT
  Age: 80 Year
  Sex: Female

DRUGS (5)
  1. RISPERDAL [Suspect]
     Route: 048
  2. RISPERDAL [Suspect]
     Indication: DEMENTIA
     Route: 048
  3. HALOPERIDOL [Suspect]
     Indication: DEMENTIA
     Route: 048
  4. GRAMALIL [Concomitant]
     Route: 048
  5. ARICEPT [Concomitant]
     Route: 048

REACTIONS (5)
  - ARRHYTHMIA [None]
  - CARDIAC FAILURE [None]
  - EXTRAPYRAMIDAL DISORDER [None]
  - RENAL DISORDER [None]
  - RENAL FAILURE [None]
